FAERS Safety Report 16132007 (Version 6)
Quarter: 2019Q2

REPORT INFORMATION
  Report Type: Report from Study
  Country: US (occurrence: US)
  Receive Date: 20190329
  Receipt Date: 20190603
  Transmission Date: 20190711
  Serious: Yes (Hospitalization, Other)
  Sender: FDA-Public Use
  Company Number: US-ROCHE-2265262

PATIENT
  Age: 73 Year
  Sex: Female

DRUGS (3)
  1. ESBRIET [Suspect]
     Active Substance: PIRFENIDONE
     Indication: IDIOPATHIC PULMONARY FIBROSIS
     Route: 048
     Dates: start: 20181231
  2. ESBRIET [Suspect]
     Active Substance: PIRFENIDONE
     Dosage: ONGOING: YES
     Route: 048
     Dates: start: 20190215
  3. ESBRIET [Suspect]
     Active Substance: PIRFENIDONE
     Dosage: TWO PILLS THREE TIMES A DAY; ONGOING: YES
     Route: 048

REACTIONS (19)
  - Abdominal discomfort [Recovered/Resolved with Sequelae]
  - Speech disorder [Recovered/Resolved]
  - Amnesia [Unknown]
  - Herpes zoster [Unknown]
  - Dehydration [Recovered/Resolved]
  - Dyspnoea [Unknown]
  - Drug ineffective [Unknown]
  - Gastric disorder [Unknown]
  - Cough [Recovering/Resolving]
  - Mobility decreased [Not Recovered/Not Resolved]
  - Malaise [Unknown]
  - Gastroenteritis viral [Unknown]
  - Transient ischaemic attack [Recovering/Resolving]
  - Vomiting [Recovered/Resolved]
  - Nausea [Recovered/Resolved with Sequelae]
  - Gastroenteritis viral [Recovered/Resolved]
  - Dyspepsia [Unknown]
  - Respiratory disorder [Recovering/Resolving]
  - Malaise [Recovered/Resolved with Sequelae]

NARRATIVE: CASE EVENT DATE: 201903
